FAERS Safety Report 15683853 (Version 1)
Quarter: 2018Q4

REPORT INFORMATION
  Report Type: Spontaneous
  Country: US (occurrence: US)
  Receive Date: 20181204
  Receipt Date: 20181204
  Transmission Date: 20190205
  Serious: No
  Sender: FDA-Public Use
  Company Number: US-GLENMARK PHARMACEUTICALS-2018GMK037731

PATIENT

DRUGS (4)
  1. LIDOCAINE OINTMENT USP 5% [Suspect]
     Active Substance: LIDOCAINE
     Indication: MUSCULOSKELETAL PAIN
  2. ADVIL (MEFENAMIC ACID) [Concomitant]
     Active Substance: MEFENAMIC ACID
     Indication: PAIN
     Dosage: UNK
     Route: 065
  3. ALEVE [Concomitant]
     Active Substance: NAPROXEN SODIUM
     Indication: PAIN
     Dosage: UNK
     Route: 065
  4. LIDOCAINE OINTMENT USP 5% [Suspect]
     Active Substance: LIDOCAINE
     Indication: BACK PAIN
     Dosage: UNK UNK, HS (AT NIGHT BEFORE SLEEP)
     Route: 065

REACTIONS (3)
  - Prescription drug used without a prescription [Unknown]
  - Drug ineffective for unapproved indication [Unknown]
  - Hypoaesthesia [Not Recovered/Not Resolved]
